FAERS Safety Report 19457528 (Version 2)
Quarter: 2021Q3

REPORT INFORMATION
  Report Type: Spontaneous
  Country: JP (occurrence: JP)
  Receive Date: 20210624
  Receipt Date: 20210726
  Transmission Date: 20211014
  Serious: Yes (Hospitalization)
  Sender: FDA-Public Use
  Company Number: JP-PFIZER INC-2021729089

PATIENT
  Age: 70 Year
  Sex: Female

DRUGS (3)
  1. AMBISOME [Suspect]
     Active Substance: AMPHOTERICIN B
     Dosage: UNK
     Route: 041
  2. ITRACONAZOLE. [Concomitant]
     Active Substance: ITRACONAZOLE
     Dosage: UNK
  3. MEROPENEM. [Suspect]
     Active Substance: MEROPENEM
     Dosage: UNK
     Route: 041

REACTIONS (6)
  - Fungal infection [Unknown]
  - Hypokalaemia [Recovered/Resolved]
  - Hypomagnesaemia [Recovered/Resolved]
  - Candida infection [Unknown]
  - Torsade de pointes [Recovered/Resolved]
  - Fungaemia [Unknown]

NARRATIVE: CASE EVENT DATE: 201910
